FAERS Safety Report 13358043 (Version 1)
Quarter: 2017Q1

REPORT INFORMATION
  Report Type: Spontaneous
  Country: US (occurrence: US)
  Receive Date: 20170322
  Receipt Date: 20170322
  Transmission Date: 20170429
  Serious: No
  Sender: FDA-Public Use
  Company Number: US-PFIZER INC-2017122673

PATIENT
  Age: 13 Year
  Sex: Male

DRUGS (4)
  1. GENOTROPIN [Suspect]
     Active Substance: SOMATROPIN
     Dosage: 1.2 MG, 1X/DAY, 6X/WEEK
     Route: 058
     Dates: start: 2012
  2. GENOTROPIN [Suspect]
     Active Substance: SOMATROPIN
     Dosage: 2.2 MG, 1X/DAY, 6X/WEEK
     Route: 058
  3. GENOTROPIN [Suspect]
     Active Substance: SOMATROPIN
     Dosage: 1.4 MG, 1X/DAY, 6X/WEEK
     Route: 058
     Dates: start: 20130117
  4. GENOTROPIN [Suspect]
     Active Substance: SOMATROPIN
     Indication: SMALL FOR DATES BABY
     Dosage: 1 MG, 1X/DAY, 6X/WEEK
     Route: 058

REACTIONS (2)
  - Migraine [Not Recovered/Not Resolved]
  - Drug dose omission [Not Recovered/Not Resolved]
